FAERS Safety Report 9313153 (Version 1)
Quarter: 2013Q2

REPORT INFORMATION
  Report Type: Spontaneous
  Country: US (occurrence: US)
  Receive Date: 20130528
  Receipt Date: 20130528
  Transmission Date: 20140414
  Serious: No
  Sender: FDA-Public Use
  Company Number: US-ABBOTT-13P-163-1051165-00

PATIENT
  Sex: Male
  Weight: 89.89 kg

DRUGS (4)
  1. ANDROGEL [Suspect]
     Indication: BLOOD TESTOSTERONE DECREASED
     Dates: start: 20130123
  2. METFORMIN [Concomitant]
     Indication: DIABETES MELLITUS
  3. LEVOTHYROXINE [Concomitant]
     Indication: BLOOD THYROID STIMULATING HORMONE DECREASED
  4. CYMBALTA [Concomitant]
     Indication: NEUROPATHY PERIPHERAL

REACTIONS (1)
  - Prostatic specific antigen increased [Not Recovered/Not Resolved]
